FAERS Safety Report 23146747 (Version 2)
Quarter: 2023Q4

REPORT INFORMATION
  Report Type: Spontaneous
  Country: US (occurrence: US)
  Receive Date: 20231105
  Receipt Date: 20231117
  Transmission Date: 20240109
  Serious: Yes (Other)
  Sender: FDA-Public Use
  Company Number: US-ELITEPHARMA-2023ELSPO00167

PATIENT
  Sex: Male

DRUGS (1)
  1. DEXTROAMPHET SACCHARAT, AMPHET ASPARTATE, DEXTROAMPHET SULFATE AND AMP [Suspect]
     Active Substance: AMPHETAMINE ASPARTATE\AMPHETAMINE ASPARTATE MONOHYDRATE\AMPHETAMINE SULFATE\DEXTROAMPHETAMINE SACCHA
     Indication: Product used for unknown indication
     Route: 065
     Dates: start: 20231017

REACTIONS (9)
  - Urinary retention [Unknown]
  - Chromaturia [Unknown]
  - Headache [Unknown]
  - Somnolence [Unknown]
  - Illness [Unknown]
  - Abdominal discomfort [Unknown]
  - Drug ineffective [Unknown]
  - Product quality issue [Unknown]
  - Intentional product use issue [Unknown]
